FAERS Safety Report 9639900 (Version 1)
Quarter: 2013Q4

REPORT INFORMATION
  Report Type: Spontaneous
  Country: US (occurrence: None)
  Receive Date: 20131021
  Receipt Date: 20131021
  Transmission Date: 20140711
  Serious: No
  Sender: FDA-Public Use
  Company Number: None

PATIENT
  Sex: Female

DRUGS (4)
  1. LIVALO [Suspect]
     Indication: BLOOD CHOLESTEROL
     Dosage: 10 PILLS, 1/2 TABLET NIGHTLY, BEDTIME
     Dates: start: 20130703, end: 20130713
  2. CRESTOR [Concomitant]
  3. WELCHOL [Concomitant]
  4. COLESTIPOL [Concomitant]

REACTIONS (2)
  - Muscular weakness [None]
  - Pollakiuria [None]
